FAERS Safety Report 5436023-3 (Version None)
Quarter: 2007Q3

REPORT INFORMATION
  Report Type: 
  Country: None (occurrence: None)
  Receive Date: 20070831
  Receipt Date: 20070828
  Transmission Date: 20080115
  Serious: Yes (Hospitalization)
  Sender: FDA-Public Use
  Company Number: B0478308A

PATIENT
  Age: 37 Year
  Sex: Female

DRUGS (5)
  1. LAMICTAL [Suspect]
     Indication: EPILEPSY
     Dosage: 200MG TWICE PER DAY
     Route: 048
     Dates: end: 20070620
  2. KEPPRA [Concomitant]
     Indication: EPILEPSY
     Dosage: 3TAB TWICE PER DAY
     Route: 048
  3. XANAX [Concomitant]
     Indication: ANXIETY
     Dosage: .25MG PER DAY
     Route: 048
  4. IXEL [Concomitant]
     Indication: MAJOR DEPRESSION
     Dosage: 25MG PER DAY
     Route: 048
     Dates: start: 20070602
  5. DEPAKENE [Concomitant]
     Indication: EPILEPSY
     Dosage: 1500MG PER DAY
     Route: 048

REACTIONS (8)
  - ACCIDENTAL OVERDOSE [None]
  - BALANCE DISORDER [None]
  - COORDINATION ABNORMAL [None]
  - FALL [None]
  - GAIT DISTURBANCE [None]
  - HEAD TITUBATION [None]
  - NYSTAGMUS [None]
  - TREMOR [None]
